FAERS Safety Report 7624218-X (Version None)
Quarter: 2011Q3

REPORT INFORMATION
  Report Type: 
  Country: None (occurrence: None)
  Receive Date: 20110720
  Receipt Date: 20110720
  Transmission Date: 20111222
  Serious: No
  Sender: FDA-Public Use
  Company Number: None

PATIENT
  Age: 69 Year
  Sex: Male
  Weight: 90.718 kg

DRUGS (1)
  1. PRADAXA [Suspect]
     Dosage: 150MG
     Route: 048
     Dates: start: 20110602, end: 20110702

REACTIONS (3)
  - DYSPEPSIA [None]
  - FATIGUE [None]
  - DYSGEUSIA [None]
